FAERS Safety Report 5625106-0 (Version None)
Quarter: 2008Q1

REPORT INFORMATION
  Report Type: 
  Country: None (occurrence: None)
  Receive Date: 20080213
  Receipt Date: 20080118
  Transmission Date: 20080703
  Serious: No
  Sender: FDA-Public Use
  Company Number: US-BOEHRINGER INGELHEIM GMBH, GERMANY-2007-BP-26811BP

PATIENT
  Sex: Female

DRUGS (14)
  1. CATAPRES-TTS-1 [Suspect]
     Indication: HYPERTENSION
     Route: 061
     Dates: start: 20050101
  2. WATER PILL [Concomitant]
  3. LANTUS [Concomitant]
     Indication: DIABETES MELLITUS
  4. METFORMIN HCL [Concomitant]
     Indication: DIABETES MELLITUS
     Route: 048
  5. GLYBURIDE [Concomitant]
     Indication: DIABETES MELLITUS
  6. BENICAR [Concomitant]
     Indication: BLOOD PRESSURE
  7. CHLORTHALIDONE [Concomitant]
     Indication: BLOOD PRESSURE
  8. LEXAPRO [Concomitant]
  9. PROCTOFOAM HC [Concomitant]
  10. NASONEX [Concomitant]
  11. LIPITOR [Concomitant]
  12. CALCIUM 600 +D [Concomitant]
  13. COMPLETE MULTI VITAMIN [Concomitant]
  14. METAMUCIL [Concomitant]

REACTIONS (2)
  - HYPERTENSION [None]
  - NASOPHARYNGITIS [None]
